FAERS Safety Report 6986114-0 (Version None)
Quarter: 2010Q3

REPORT INFORMATION
  Report Type: 
  Country: None (occurrence: None)
  Receive Date: 20100910
  Receipt Date: 20100903
  Transmission Date: 20110219
  Serious: Yes (Other)
  Sender: FDA-Public Use
  Company Number: VISP-NO-1007S-0371

PATIENT
  Age: 69 Year
  Sex: Female

DRUGS (1)
  1. VISIPAQUE [Suspect]
     Indication: POSTOPERATIVE CARE
     Dosage: NR, SINGLE DOSE, I.V.
     Route: 042
     Dates: start: 20100606, end: 20100606

REACTIONS (2)
  - ERYTHEMA [None]
  - SKIN NECROSIS [None]
